FAERS Safety Report 6894963-2 (Version None)
Quarter: 2010Q3

REPORT INFORMATION
  Report Type: 
  Country: None (occurrence: None)
  Receive Date: 20100708
  Receipt Date: 20100426
  Transmission Date: 20110219
  Serious: Yes (Other)
  Sender: FDA-Public Use
  Company Number: 2010053190

PATIENT
  Age: 53 Year
  Sex: Female
  Weight: 59 kg

DRUGS (5)
  1. CHANTIX [Suspect]
     Indication: SMOKING CESSATION THERAPY
     Dosage: SEE IMAGE
     Route: 048
     Dates: start: 20100419, end: 20100401
  2. CHANTIX [Suspect]
     Indication: SMOKING CESSATION THERAPY
     Dosage: SEE IMAGE
     Route: 048
     Dates: start: 20100401
  3. REQUIP [Concomitant]
  4. SUDAFED 12 HOUR [Concomitant]
  5. IBUPROFEN [Concomitant]

REACTIONS (6)
  - AGITATION [None]
  - ASTHENIA [None]
  - CONSTIPATION [None]
  - FATIGUE [None]
  - FLATULENCE [None]
  - NAUSEA [None]
